FAERS Safety Report 13410163 (Version 6)
Quarter: 2017Q3

REPORT INFORMATION
  Report Type: Spontaneous
  Country: US (occurrence: US)
  Receive Date: 20170406
  Receipt Date: 20170908
  Transmission Date: 20171127
  Serious: Yes (Congenital Anomaly, Other)
  Sender: FDA-Public Use
  Company Number: PHEH2017US009888

PATIENT
  Sex: Male

DRUGS (2)
  1. ONDANSETRONE DR. REDDY^S [Suspect]
     Active Substance: ONDANSETRON HYDROCHLORIDE
     Indication: FOETAL EXPOSURE DURING PREGNANCY
     Dosage: MOTHER DOSE: 04 MG, QD, 08 MG, QD
     Route: 064
  2. ZOFRAN [Suspect]
     Active Substance: ONDANSETRON HYDROCHLORIDE
     Indication: FOETAL EXPOSURE DURING PREGNANCY
     Route: 064

REACTIONS (11)
  - Injury [Unknown]
  - Jaundice neonatal [Unknown]
  - Foetal exposure during pregnancy [Unknown]
  - Pyrexia [Unknown]
  - Cough [Unknown]
  - Ventricular septal defect [Unknown]
  - Sinus tachycardia [Unknown]
  - Sleep apnoea syndrome [Unknown]
  - Head injury [Unknown]
  - Nasal congestion [Unknown]
  - Oropharyngeal pain [Unknown]
